FAERS Safety Report 4538606-1 (Version None)
Quarter: 2004Q4

REPORT INFORMATION
  Report Type: 
  Country: None (occurrence: None)
  Receive Date: 20041222
  Receipt Date: 20041216
  Transmission Date: 20050328
  Serious: Yes (Hospitalization)
  Sender: FDA-Public Use
  Company Number: 2004-UK-006772UK (1)

PATIENT
  Age: 42 Year
  Sex: Female

DRUGS (3)
  1. COMBIVENT MDI (7/52/1) (COMBIVENT) [Suspect]
     Indication: ASTHMA
     Dosage: 2 DOSES, 3 TIMES DAILY (NR, 3 TIMES A DAY), IH
     Route: 055
     Dates: start: 20040602
  2. VENTOLIN [Suspect]
     Indication: ASTHMA
     Dosage: 2 DOSES 3 TIMES DAILY, (NR, THREE TIMES A DAY)
     Dates: start: 20040602, end: 20040615
  3. QUININE SULFATE (QUININE SULFATE) [Concomitant]

REACTIONS (4)
  - AGITATION [None]
  - EUPHORIC MOOD [None]
  - FEELING ABNORMAL [None]
  - HALLUCINATION [None]
